FAERS Safety Report 20868756 (Version 1)
Quarter: 2022Q2

REPORT INFORMATION
  Report Type: Spontaneous
  Country: US (occurrence: US)
  Receive Date: 20220524
  Receipt Date: 20220524
  Transmission Date: 20220720
  Serious: No
  Sender: FDA-Public Use
  Company Number: US-PFIZER INC-202200739524

PATIENT
  Age: 54 Year
  Sex: Female

DRUGS (1)
  1. IBRANCE [Suspect]
     Active Substance: PALBOCICLIB
     Dosage: 125 MG, CYCLIC (TAKE 1 CAPSULE ONCE DAILY FOR 21 DAYS ON AND 7 DAYS OFF)
     Dates: start: 20220126

REACTIONS (5)
  - Hypersensitivity [Unknown]
  - Oropharyngeal pain [Recovered/Resolved]
  - Nasal congestion [Unknown]
  - Insomnia [Unknown]
  - Upper-airway cough syndrome [Unknown]
